FAERS Safety Report 20380618 (Version 6)
Quarter: 2024Q2

REPORT INFORMATION
  Report Type: Spontaneous
  Country: US (occurrence: US)
  Receive Date: 20220127
  Receipt Date: 20240429
  Transmission Date: 20240715
  Serious: No
  Sender: FDA-Public Use
  Company Number: US-SA-SAC20220125000501

PATIENT
  Age: 30 Year
  Sex: Male

DRUGS (2)
  1. DUPIXENT [Suspect]
     Active Substance: DUPILUMAB
     Indication: Nasal polyps
     Dosage: 300 MG, QOW
     Route: 058
     Dates: start: 20211101
  2. DUPIXENT [Suspect]
     Active Substance: DUPILUMAB
     Indication: Chronic sinusitis
     Dosage: 300 MG, QOW
     Route: 058
     Dates: start: 202112

REACTIONS (13)
  - Dyspnoea [Not Recovered/Not Resolved]
  - Nasal crusting [Not Recovered/Not Resolved]
  - Epistaxis [Not Recovered/Not Resolved]
  - Mental disorder [Unknown]
  - General physical condition abnormal [Unknown]
  - Dry skin [Not Recovered/Not Resolved]
  - Sensitive skin [Unknown]
  - Photosensitivity reaction [Unknown]
  - Pain of skin [Unknown]
  - Vision blurred [Recovered/Resolved]
  - Skin exfoliation [Unknown]
  - Erythema [Not Recovered/Not Resolved]
  - Product use in unapproved indication [Unknown]

NARRATIVE: CASE EVENT DATE: 20211101
